FAERS Safety Report 7313578-5 (Version None)
Quarter: 2011Q1

REPORT INFORMATION
  Report Type: 
  Country: None (occurrence: None)
  Receive Date: 20110218
  Receipt Date: 20110218
  Transmission Date: 20110831
  Serious: Yes (Hospitalization)
  Sender: FDA-Public Use
  Company Number: None

PATIENT
  Sex: Female
  Weight: 110 kg

DRUGS (1)
  1. LOVENOX [Suspect]
     Indication: ATRIAL FIBRILLATION
     Dosage: 100 MG BID SUBQ
     Route: 058
     Dates: start: 20110201, end: 20110206

REACTIONS (3)
  - THROMBOSIS [None]
  - INTRA-ABDOMINAL HAEMATOMA [None]
  - ABSCESS [None]
